FAERS Safety Report 8734128 (Version 2)
Quarter: 2012Q4

REPORT INFORMATION
  Report Type: 
  Country: US (occurrence: US)
  Receive Date: 20120821
  Receipt Date: 20121011
  Transmission Date: 20130627
  Serious: No
  Sender: FDA-Public Use
  Company Number: US-TEVA-354588USA

PATIENT
  Age: 28 Year
  Sex: Female
  Weight: 56.75 kg

DRUGS (9)
  1. PROAIR HFA [Suspect]
     Indication: ASTHMA
     Dosage: 2 puffs prn 1-2 daily
  2. AMPHETAMINES [Concomitant]
  3. QNASL [Concomitant]
     Dosage: 80 Microgram Daily; 2 sprays each nostril
  4. ESTRATEST [Concomitant]
     Indication: HORMONE REPLACEMENT THERAPY
  5. LORATADINE [Concomitant]
     Indication: HYPERSENSITIVITY
  6. ARTHROTEC [Concomitant]
  7. ELMIRON [Concomitant]
     Indication: BLADDER DISORDER
  8. PRISTIQ [Concomitant]
     Indication: DEPRESSION
  9. NYQUIL [Concomitant]
     Indication: NASOPHARYNGITIS

REACTIONS (1)
  - Drug screen positive [Unknown]
